FAERS Safety Report 7633190-8 (Version None)
Quarter: 2011Q3

REPORT INFORMATION
  Report Type: 
  Country: None (occurrence: None)
  Receive Date: 20110725
  Receipt Date: 20110714
  Transmission Date: 20111222
  Serious: Yes (Hospitalization)
  Sender: FDA-Public Use
  Company Number: JP-ROCHE-772454

PATIENT
  Sex: Female
  Weight: 57.5 kg

DRUGS (7)
  1. BARAMYCIN [Concomitant]
     Dosage: OINTMENT AND CREAM,PROPER PROPER QUANTITY
     Route: 061
     Dates: start: 20110401
  2. TOCILIZUMAB [Suspect]
     Indication: RHEUMATOID ARTHRITIS
     Route: 058
     Dates: start: 20110308
  3. TOCILIZUMAB [Suspect]
     Route: 058
     Dates: start: 20100921, end: 20110222
  4. PLACEBO [Suspect]
     Indication: RHEUMATOID ARTHRITIS
     Route: 042
     Dates: start: 20100921, end: 20110222
  5. LOXONIN [Concomitant]
     Dosage: BEGINNING OF DOSAGE DAY: BEFORE FOUR INVESTIGATIONAL AGENT ADMINISTERING WEEKS-
     Route: 048
  6. SELBEX [Concomitant]
     Dosage: BEGINNING OF DOSAGE DAY: BEFORE FOUR INVESTIGATIONAL AGENT ADMINISTERING WEEKS-
     Route: 048
  7. RESTAMIN [Concomitant]
     Dosage: OINTMENT AND CREAM,PROPER PROPER QUANTITY
     Route: 061
     Dates: start: 20110401

REACTIONS (1)
  - PERIPHERAL EMBOLISM [None]
